FAERS Safety Report 6184533-6 (Version None)
Quarter: 2009Q2

REPORT INFORMATION
  Report Type: 
  Country: None (occurrence: None)
  Receive Date: 20090508
  Receipt Date: 20090428
  Transmission Date: 20091009
  Serious: Yes (Hospitalization, Other)
  Sender: FDA-Public Use
  Company Number: AE-AMGEN-UK344637

PATIENT
  Age: 57 Year
  Sex: Female

DRUGS (5)
  1. NEULASTIM [Suspect]
     Indication: CHEMOTHERAPY
     Route: 058
     Dates: start: 20090304
  2. FLUOROURACIL [Suspect]
     Dates: start: 20090304, end: 20090304
  3. CYTOXAN [Suspect]
     Route: 042
     Dates: start: 20090304, end: 20090304
  4. FEMARA [Concomitant]
  5. ZOMETA [Concomitant]

REACTIONS (3)
  - ANAEMIA [None]
  - NEUTROPENIA [None]
  - THROMBOCYTOPENIA [None]
